FAERS Safety Report 7904569-1 (Version None)
Quarter: 2011Q4

REPORT INFORMATION
  Report Type: 
  Country: None (occurrence: None)
  Receive Date: 20111109
  Receipt Date: 20111101
  Transmission Date: 20120403
  Serious: Yes (Hospitalization)
  Sender: FDA-Public Use
  Company Number: US-GLAXOSMITHKLINE-A0518953A

PATIENT
  Sex: Female

DRUGS (4)
  1. PAXIL [Suspect]
     Indication: DEPRESSION
     Route: 065
     Dates: start: 20030101
  2. MIRAPEX [Concomitant]
  3. EFFEXOR [Concomitant]
  4. LORAZEPAM [Concomitant]

REACTIONS (11)
  - LOSS OF EMPLOYMENT [None]
  - WITHDRAWAL SYNDROME [None]
  - QUALITY OF LIFE DECREASED [None]
  - FEAR [None]
  - INTENTIONAL OVERDOSE [None]
  - SUICIDE ATTEMPT [None]
  - FEELING ABNORMAL [None]
  - CONFUSIONAL STATE [None]
  - MEMORY IMPAIRMENT [None]
  - TINNITUS [None]
  - ANXIETY [None]
